FAERS Safety Report 19135057 (Version 6)
Quarter: 2021Q4

REPORT INFORMATION
  Report Type: Spontaneous
  Country: US (occurrence: US)
  Receive Date: 20210414
  Receipt Date: 20211019
  Transmission Date: 20220303
  Serious: Yes (Other)
  Sender: FDA-Public Use
  Company Number: US-TEVA-2021-US-1896301

PATIENT
  Age: 44 Year
  Sex: Male

DRUGS (6)
  1. DISULFIRAM [Suspect]
     Active Substance: DISULFIRAM
     Indication: Alcoholism
     Dosage: 500 MILLIGRAM DAILY;
     Route: 065
     Dates: start: 2017
  2. DISULFIRAM [Suspect]
     Active Substance: DISULFIRAM
     Dosage: 500 MILLIGRAM DAILY;
     Route: 065
     Dates: start: 2018
  3. DISULFIRAM [Suspect]
     Active Substance: DISULFIRAM
     Dosage: 500 MILLIGRAM DAILY; 1 TAB DAILY
     Route: 065
     Dates: start: 20201204, end: 202101
  4. DEPAKOTE [Concomitant]
     Active Substance: DIVALPROEX SODIUM
  5. BUSPIRONE [Concomitant]
     Active Substance: BUSPIRONE HYDROCHLORIDE
  6. SEROQUEL [Concomitant]
     Active Substance: QUETIAPINE FUMARATE

REACTIONS (9)
  - Alcoholism [Unknown]
  - Critical illness [Unknown]
  - Road traffic accident [Unknown]
  - Drug ineffective [Unknown]
  - Wrong technique in product usage process [Unknown]
  - Product dose omission issue [Unknown]
  - Blood alcohol increased [Unknown]
  - Product quality issue [Unknown]
  - Illness [Unknown]

NARRATIVE: CASE EVENT DATE: 20201201
